FAERS Safety Report 7635181-X (Version None)
Quarter: 2011Q3

REPORT INFORMATION
  Report Type: 
  Country: None (occurrence: None)
  Receive Date: 20110718
  Receipt Date: 20110621
  Transmission Date: 20111222
  Serious: Yes (Hospitalization)
  Sender: FDA-Public Use
  Company Number: US-005625

PATIENT
  Sex: Female
  Weight: 100.6985 kg

DRUGS (2)
  1. LEVOTHYROXINE SODIUM [Concomitant]
  2. TRANEXAMIC ACID [Suspect]
     Indication: MENORRHAGIA
     Dosage: (650 MG 2 TABS BID X 5 DAYS/ MONTH ORAL)
     Route: 048
     Dates: start: 20110218, end: 20110501

REACTIONS (1)
  - BLOOD PRESSURE INCREASED [None]
